FAERS Safety Report 17963528 (Version 1)
Quarter: 2020Q2

REPORT INFORMATION
  Report Type: Report from Study
  Country: JP (occurrence: JP)
  Receive Date: 20200630
  Receipt Date: 20200630
  Transmission Date: 20200714
  Serious: Yes (Hospitalization, Other)
  Sender: FDA-Public Use
  Company Number: JP-PFIZER INC-2019-05844

PATIENT
  Age: 47 Year
  Sex: Female
  Weight: 62 kg

DRUGS (18)
  1. ENCORAFENIB [Suspect]
     Active Substance: ENCORAFENIB
     Dosage: 300 MG, EVERYDAY
     Route: 048
     Dates: start: 20190805, end: 20190805
  2. LOXONIN [Suspect]
     Active Substance: LOXOPROFEN SODIUM
     Indication: PYREXIA
     Dosage: UNK
     Route: 048
     Dates: start: 20190612
  3. BINIMETINIB [Suspect]
     Active Substance: BINIMETINIB
     Dosage: 90 MG, EVERYDAY
     Route: 048
     Dates: start: 20190531, end: 20190609
  4. REBAMIPIDE [Concomitant]
     Active Substance: REBAMIPIDE
     Indication: PRODUCT USED FOR UNKNOWN INDICATION
     Dosage: UNK
     Route: 048
     Dates: start: 201901
  5. BINIMETINIB [Suspect]
     Active Substance: BINIMETINIB
     Dosage: 60 MG, EVERYDAY
     Route: 048
     Dates: start: 20190730, end: 20190730
  6. BINIMETINIB [Suspect]
     Active Substance: BINIMETINIB
     Dosage: 60 MG, EVERYDAY
     Route: 048
     Dates: start: 20190805, end: 20190805
  7. OPDIVO [Suspect]
     Active Substance: NIVOLUMAB
     Dosage: 80.00 MG
     Route: 041
     Dates: start: 20190925, end: 20190925
  8. ENCORAFENIB [Suspect]
     Active Substance: ENCORAFENIB
     Dosage: 450 MG, EVERYDAY
     Route: 048
     Dates: start: 20190612, end: 20190616
  9. PRIMPERAN [Concomitant]
     Active Substance: METOCLOPRAMIDE HYDROCHLORIDE
     Indication: PRODUCT USED FOR UNKNOWN INDICATION
     Dosage: UNK
     Route: 048
  10. ENCORAFENIB [Suspect]
     Active Substance: ENCORAFENIB
     Dosage: 450 MG, EVERYDAY
     Route: 048
     Dates: start: 20190531, end: 20190609
  11. BINIMETINIB [Suspect]
     Active Substance: BINIMETINIB
     Dosage: 90 MG, EVERYDAY
     Route: 048
     Dates: start: 20190612, end: 20190616
  12. TELMISARTAN. [Concomitant]
     Active Substance: TELMISARTAN
     Indication: PRODUCT USED FOR UNKNOWN INDICATION
     Dosage: UNK
     Route: 048
  13. ENCORAFENIB [Suspect]
     Active Substance: ENCORAFENIB
     Indication: MALIGNANT MELANOMA
     Dosage: 450 MG, EVERYDAY
     Route: 048
     Dates: start: 20190528, end: 20190529
  14. OPDIVO [Suspect]
     Active Substance: NIVOLUMAB
     Indication: MALIGNANT MELANOMA
     Dosage: 240 MG/DAY
     Route: 041
     Dates: start: 20190702, end: 20190716
  15. LOXOPROFEN [Concomitant]
     Active Substance: LOXOPROFEN
     Indication: PRODUCT USED FOR UNKNOWN INDICATION
     Dosage: UNK
     Route: 048
     Dates: start: 201901
  16. BINIMETINIB [Suspect]
     Active Substance: BINIMETINIB
     Indication: MALIGNANT MELANOMA
     Dosage: 90 MG, EVERYDAY
     Route: 048
     Dates: start: 20190528, end: 20190529
  17. ENCORAFENIB [Suspect]
     Active Substance: ENCORAFENIB
     Dosage: 300 MG, EVERYDAY
     Route: 048
     Dates: start: 20190730, end: 20190730
  18. FERROUS CITRATE NA [Concomitant]
     Active Substance: SODIUM FERROUS CITRATE
     Indication: PRODUCT USED FOR UNKNOWN INDICATION
     Dosage: UNK
     Route: 048

REACTIONS (19)
  - Diarrhoea [Recovered/Resolved]
  - Diarrhoea [Recovered/Resolved]
  - Generalised oedema [Recovering/Resolving]
  - Pyrexia [Recovered/Resolved]
  - Hypoalbuminaemia [Recovered/Resolved]
  - Pyrexia [Recovered/Resolved]
  - Vomiting [Recovered/Resolved]
  - Vision blurred [Not Recovered/Not Resolved]
  - Face oedema [Recovered/Resolved]
  - Liver disorder [Recovered/Resolved]
  - Anaemia [Recovered/Resolved]
  - Decreased appetite [Recovered/Resolved]
  - Platelet count decreased [Recovered/Resolved]
  - Diarrhoea [Recovered/Resolved]
  - Rash [Recovering/Resolving]
  - Pyrexia [Recovered/Resolved]
  - Dermatitis exfoliative generalised [Recovered/Resolved]
  - Conjunctival hyperaemia [Recovered/Resolved]
  - Vomiting [Recovered/Resolved]

NARRATIVE: CASE EVENT DATE: 20190529
